FAERS Safety Report 8740198 (Version 3)
Quarter: 2013Q1

REPORT INFORMATION
  Report Type: Report from Study
  Country: US (occurrence: US)
  Receive Date: 20120823
  Receipt Date: 20130207
  Transmission Date: 20140127
  Serious: Yes (Hospitalization)
  Sender: FDA-Public Use
  Company Number: US-MERCK-1109USA00513

PATIENT
  Age: 50 Year
  Sex: Female
  Weight: 78.8 kg

DRUGS (17)
  1. DALOTUZUMAB [Suspect]
     Indication: BREAST CANCER
     Dosage: DAY 1 AND DAY 8
     Route: 042
     Dates: start: 20110615, end: 20110615
  2. DALOTUZUMAB [Suspect]
     Dosage: DAY 1 AND DAY 8
     Route: 042
     Dates: start: 20110622, end: 20110622
  3. DEXAMETHASONE [Suspect]
     Indication: PREMEDICATION
     Dosage: 18 MG, ONCE
     Route: 048
     Dates: start: 20110630, end: 20110630
  4. DECADRON [Suspect]
     Indication: PREMEDICATION
     Dosage: 18 MG, QD
     Route: 048
     Dates: start: 20110701, end: 20110703
  5. DECADRON [Suspect]
     Indication: PREMEDICATION
  6. HYDROCHLOROTHIAZIDE [Concomitant]
     Indication: HYPERTENSION
     Dosage: 25 MG, QD
     Route: 048
     Dates: start: 20110101
  7. PRAVASTATIN SODIUM [Concomitant]
     Indication: HYPERCHOLESTEROLAEMIA
     Dosage: 20 MG, QD
     Route: 048
     Dates: start: 20110101
  8. TYLENOL [Concomitant]
     Indication: PAIN
     Dosage: 500 MG, PRN
     Route: 048
     Dates: start: 20110101
  9. LORATADINE [Concomitant]
     Indication: HYPERSENSITIVITY
     Dosage: 10 MG, QD
     Route: 048
     Dates: start: 20110515
  10. ANCEF [Concomitant]
     Indication: INFECTION PROPHYLAXIS
     Dosage: 1 G, ONCE
     Route: 042
     Dates: start: 20110615, end: 20110615
  11. LIDOCAINE [Concomitant]
     Indication: PREMEDICATION
     Dosage: 1 %, ONCE
     Route: 042
     Dates: start: 20110615, end: 20110615
  12. FENTANYL [Concomitant]
     Indication: PAIN PROPHYLAXIS
     Dosage: 75 MG, ONCE
     Route: 042
     Dates: start: 20110615, end: 20110615
  13. ZOFRAN [Concomitant]
     Indication: PROPHYLAXIS OF NAUSEA AND VOMITING
     Dosage: 4 MG, ONCE
     Route: 042
     Dates: start: 20110615, end: 20110615
  14. VERSED [Concomitant]
     Indication: PREMEDICATION
     Dosage: 3 MG, ONCE
     Route: 042
     Dates: start: 20110615, end: 20110615
  15. CYCLOPHOSPHAMIDE [Concomitant]
     Indication: CHEMOTHERAPY
     Dosage: 970 MG, UNK
     Route: 042
     Dates: start: 20110630
  16. EPIRUBICIN HYDROCHLORIDE [Concomitant]
     Indication: CHEMOTHERAPY
     Dosage: 194 MG, UNK
     Route: 042
     Dates: start: 20110630
  17. FLUOROURACIL [Concomitant]
     Indication: CHEMOTHERAPY
     Dosage: 970 MG, UNK
     Route: 042
     Dates: start: 20110630

REACTIONS (2)
  - Delirium [Recovered/Resolved]
  - Diabetes mellitus [Recovered/Resolved]
